FAERS Safety Report 19694007 (Version 1)
Quarter: 2021Q3

REPORT INFORMATION
  Report Type: Spontaneous
  Country: US (occurrence: US)
  Receive Date: 20210813
  Receipt Date: 20210813
  Transmission Date: 20211014
  Serious: Yes (Other)
  Sender: FDA-Public Use
  Company Number: US-ROCHE-2887313

PATIENT
  Sex: Male
  Weight: 70.37 kg

DRUGS (8)
  1. ERIVEDGE [Suspect]
     Active Substance: VISMODEGIB
     Indication: BASAL CELL CARCINOMA
     Route: 048
  2. TYLENOL [Concomitant]
     Active Substance: ACETAMINOPHEN
     Indication: PAIN
     Dosage: AS NEEDED
     Route: 048
     Dates: start: 20210726
  3. ASPIRIN. [Concomitant]
     Active Substance: ASPIRIN
     Dosage: CARDIOVASCULAR HEALTH
     Route: 048
     Dates: start: 20210216
  4. SEROQUEL [Concomitant]
     Active Substance: QUETIAPINE FUMARATE
     Indication: AGITATION
     Route: 048
     Dates: start: 20201224
  5. TRIAMCINOLONE [Concomitant]
     Active Substance: TRIAMCINOLONE
     Dates: start: 20210602
  6. BACITRACIN. [Concomitant]
     Active Substance: BACITRACIN
     Dosage: ONCE TO TWICE DAILY AS NEEDED
     Dates: start: 20210527
  7. PRILOSEC [Concomitant]
     Active Substance: OMEPRAZOLE MAGNESIUM
     Indication: GASTRITIS
     Route: 048
     Dates: start: 20201231
  8. THERALEN [Concomitant]
     Active Substance: TRIMEPRAZINE
     Route: 048
     Dates: start: 20210706

REACTIONS (5)
  - Gastritis [Unknown]
  - Urinary tract infection [Recovering/Resolving]
  - Dementia [Unknown]
  - Hypertension [Unknown]
  - Bradycardia [Unknown]

NARRATIVE: CASE EVENT DATE: 20210729
